FAERS Safety Report 6883802-1 (Version None)
Quarter: 2010Q3

REPORT INFORMATION
  Report Type: 
  Country: None (occurrence: None)
  Receive Date: 20100727
  Receipt Date: 20100720
  Transmission Date: 20110219
  Serious: Yes (Death)
  Sender: FDA-Public Use
  Company Number: DE-MPIJNJ-2010-03791

PATIENT

DRUGS (3)
  1. VELCADE [Suspect]
     Indication: MULTIPLE MYELOMA
     Dosage: 1.3 MG/M2, UNK
     Dates: start: 20100225, end: 20100405
  2. DOXORUBICIN HCL [Concomitant]
  3. PREDNISOLONE [Concomitant]

REACTIONS (1)
  - DEATH [None]
